FAERS Safety Report 24719484 (Version 4)
Quarter: 2025Q1

REPORT INFORMATION
  Report Type: Report from Study
  Country: US (occurrence: US)
  Receive Date: 20241211
  Receipt Date: 20250305
  Transmission Date: 20250409
  Serious: Yes (Hospitalization, Other)
  Sender: ACADIA PHARMACEUTICALS
  Company Number: US-ACADIA PHARMACEUTICALS INC.-ACA-2024-PIM-005965

PATIENT
  Age: 79 Year
  Sex: Female

DRUGS (14)
  1. NUPLAZID [Suspect]
     Active Substance: PIMAVANSERIN TARTRATE
     Indication: Parkinson^s disease psychosis
     Dosage: 34 MILLIGRAM, QD
     Route: 048
  2. NUPLAZID [Suspect]
     Active Substance: PIMAVANSERIN TARTRATE
     Dosage: 34 MILLIGRAM, QD
     Route: 048
     Dates: start: 20241203
  3. AMANTADINE [Concomitant]
     Active Substance: AMANTADINE
  4. BENADRYL [Concomitant]
     Active Substance: DIPHENHYDRAMINE HYDROCHLORIDE
  5. MEMANTINE [Concomitant]
     Active Substance: MEMANTINE
  6. CLOPIDOGREL [Concomitant]
     Active Substance: CLOPIDOGREL BISULFATE
  7. PRAMIPEXOLE [Concomitant]
     Active Substance: PRAMIPEXOLE
  8. FOLIC ACID [Concomitant]
     Active Substance: FOLIC ACID
  9. TRADJENTA [Concomitant]
     Active Substance: LINAGLIPTIN
  10. INSULIN NOS [Concomitant]
     Active Substance: INSULIN NOS
  11. LANTUS SOLOSTAR [Concomitant]
     Active Substance: INSULIN GLARGINE
  12. CARBIDOPA\LEVODOPA [Concomitant]
     Active Substance: CARBIDOPA\LEVODOPA
  13. RASAGILINE [Concomitant]
     Active Substance: RASAGILINE
  14. MYRBETRIQ [Concomitant]
     Active Substance: MIRABEGRON

REACTIONS (4)
  - Hip fracture [Not Recovered/Not Resolved]
  - Aggression [Not Recovered/Not Resolved]
  - Product dose omission issue [Unknown]
  - Therapy interrupted [Not Recovered/Not Resolved]

NARRATIVE: CASE EVENT DATE: 20241127
